FAERS Safety Report 7954214-4 (Version None)
Quarter: 2011Q4

REPORT INFORMATION
  Report Type: 
  Country: None (occurrence: None)
  Receive Date: 20111202
  Receipt Date: 20111122
  Transmission Date: 20120403
  Serious: Yes (Other)
  Sender: FDA-Public Use
  Company Number: US-ROCHE-1015525

PATIENT
  Sex: Female

DRUGS (2)
  1. BONIVA [Suspect]
     Indication: OSTEOPOROSIS
     Dates: start: 20050601
  2. FOSAMAX [Suspect]
     Indication: OSTEOPOROSIS
     Dosage: STARTED FROM ON OR BEFORE 1999
     Dates: end: 20050501

REACTIONS (3)
  - FEMUR FRACTURE [None]
  - BONE DISORDER [None]
  - EMOTIONAL DISTRESS [None]
